FAERS Safety Report 19726177 (Version 1)
Quarter: 2021Q3

REPORT INFORMATION
  Report Type: Spontaneous
  Country: CZ (occurrence: CZ)
  Receive Date: 20210819
  Receipt Date: 20210819
  Transmission Date: 20211014
  Serious: Yes (Other)
  Sender: FDA-Public Use
  Company Number: NVSC2021CZ140051

PATIENT
  Sex: Female

DRUGS (7)
  1. DICLOFENAC [Concomitant]
     Active Substance: DICLOFENAC
     Indication: PRODUCT USED FOR UNKNOWN INDICATION
     Dosage: 100 MG (DEGREE) (SUSTAINED RELEASE)
     Route: 065
  2. DESLORATADINE. [Concomitant]
     Active Substance: DESLORATADINE
     Indication: PRODUCT USED FOR UNKNOWN INDICATION
     Dosage: 5 MG, QD (1?0?0)
     Route: 065
  3. ERDOMED [Concomitant]
     Active Substance: ERDOSTEINE
     Indication: PRODUCT USED FOR UNKNOWN INDICATION
     Dosage: 300 MG, BID (1?0?1)
     Route: 065
  4. ISOPTIN [Concomitant]
     Active Substance: VERAPAMIL HYDROCHLORIDE
     Indication: PRODUCT USED FOR UNKNOWN INDICATION
     Dosage: 240 MG, QD (1?0?0) (SUSTAINED RELEASE)
     Route: 065
  5. BEOVU [Suspect]
     Active Substance: BROLUCIZUMAB-DBLL
     Indication: CHOROIDAL NEOVASCULARISATION
     Dosage: UNK
     Route: 031
     Dates: start: 20210201
  6. SERETIDE [Concomitant]
     Active Substance: FLUTICASONE PROPIONATE\SALMETEROL XINAFOATE
     Indication: PRODUCT USED FOR UNKNOWN INDICATION
     Dosage: 250/50 (UNITS NOT SPECIFIED), BID
     Route: 055
  7. BEOVU [Suspect]
     Active Substance: BROLUCIZUMAB-DBLL
     Dosage: UNK
     Route: 031
     Dates: start: 20210326

REACTIONS (2)
  - Vitreous opacities [Unknown]
  - Vitritis [Unknown]

NARRATIVE: CASE EVENT DATE: 20210506
